FAERS Safety Report 9258518 (Version 3)
Quarter: 2013Q4

REPORT INFORMATION
  Report Type: Spontaneous
  Country: US (occurrence: US)
  Receive Date: 20130426
  Receipt Date: 20131015
  Transmission Date: 20140711
  Serious: Yes (Other)
  Sender: FDA-Public Use
  Company Number: US-BAYER-2013-052675

PATIENT
  Age: 15 Year
  Sex: Male
  Weight: 38.55 kg

DRUGS (8)
  1. KOGENATE FS [Suspect]
     Indication: FACTOR VIII DEFICIENCY
     Dosage: 2149 IU, EVERY OTHER DAY
     Route: 042
     Dates: start: 1998
  2. KOGENATE FS [Suspect]
     Indication: FACTOR VIII DEFICIENCY
  3. KOGENATE FS [Suspect]
     Indication: FACTOR VIII DEFICIENCY
     Dosage: UNK, TIW
  4. L-THYROXINE [Concomitant]
     Indication: HYPOTHYROIDISM
     Dosage: 50 MCG/24HR, QD
     Dates: start: 20130308
  5. HYDROCORTISONE [Concomitant]
     Indication: ADRENAL INSUFFICIENCY
     Dosage: 5 MG, TID
     Dates: start: 20130308
  6. FLUDROCORTISONE [Concomitant]
     Indication: ADRENAL INSUFFICIENCY
     Dosage: 0.5 MG, EVERY DAY
     Dates: start: 20130308
  7. FEXOFENADINE [Concomitant]
     Indication: SEASONAL ALLERGY
     Dosage: 60 MG, QD
     Dates: start: 201011
  8. FLUTICASONE PROPIONATE [Concomitant]
     Indication: SEASONAL ALLERGY
     Dosage: 50 MCG/24HR, QD
     Dates: start: 201011

REACTIONS (4)
  - Adrenal insufficiency [None]
  - Diarrhoea [Not Recovered/Not Resolved]
  - Hypothyroidism [None]
  - Unevaluable event [None]
